FAERS Safety Report 8956665 (Version 2)
Quarter: 2012Q4

REPORT INFORMATION
  Report Type: Report from Study
  Country: CA (occurrence: CA)
  Receive Date: 20121210
  Receipt Date: 20121219
  Transmission Date: 20130627
  Serious: Yes (Death)
  Sender: FDA-Public Use
  Company Number: PHHY2012CA113032

PATIENT
  Age: 54 Year
  Sex: Male

DRUGS (11)
  1. CLOZARIL [Suspect]
     Indication: SCHIZOPHRENIA
     Dosage: 500 mg, QD
     Route: 048
     Dates: start: 19951012
  2. PAROXETINE [Concomitant]
     Dosage: UNK UKN, UNK
  3. SENNA [Concomitant]
     Dosage: UNK UKN, UNK
  4. ENSURE [Concomitant]
     Dosage: UNK UKN, UNK
  5. PROCYCLIDINE [Concomitant]
     Dosage: UNK UKN, UNK
  6. OMEPRAZOLE [Concomitant]
     Dosage: UNK UKN, UNK
  7. FERROUS SULPHATE [Concomitant]
     Dosage: UNK UKN, UNK
  8. FLUANXOL ^FISONS^ [Concomitant]
     Dosage: UNK UKN, UNK
  9. ATORVASTATIN [Concomitant]
     Dosage: UNK UKN, UNK
  10. DOCUSOFT [Concomitant]
     Dosage: UNK UKN, UNK
  11. ASA [Concomitant]
     Dosage: UNK UKN, UNK

REACTIONS (3)
  - Loss of consciousness [Fatal]
  - Circulatory collapse [Fatal]
  - Myocardial infarction [Fatal]
